FAERS Safety Report 24547595 (Version 1)
Quarter: 2024Q4

REPORT INFORMATION
  Report Type: Spontaneous
  Country: FR (occurrence: FR)
  Receive Date: 20241025
  Receipt Date: 20241025
  Transmission Date: 20250114
  Serious: Yes (Hospitalization)
  Sender: AUROBINDO
  Company Number: FR-AFSSAPS-PC2024000803

PATIENT
  Age: 42 Year
  Sex: Male
  Weight: 140 kg

DRUGS (6)
  1. FOSFOMYCIN [Suspect]
     Active Substance: FOSFOMYCIN
     Indication: Meningitis
     Dosage: 4 GRAM, ONCE A DAY
     Route: 042
     Dates: start: 20240906, end: 20240911
  2. LINEZOLID [Suspect]
     Active Substance: LINEZOLID
     Indication: Meningitis bacterial
     Dosage: 600 MILLIGRAM, ONCE A DAY
     Route: 042
     Dates: start: 20240906, end: 20240911
  3. URAPIDIL [Suspect]
     Active Substance: URAPIDIL
     Indication: Product used for unknown indication
     Dosage: 50 MILLIGRAM, ONCE A DAY
     Route: 042
     Dates: start: 20240906
  4. MEROPENEM [Suspect]
     Active Substance: MEROPENEM
     Indication: Meningitis bacterial
     Dosage: 2 GRAM, 3 TIMES A DAY
     Route: 042
     Dates: start: 20240828, end: 20240909
  5. MEROPENEM [Suspect]
     Active Substance: MEROPENEM
     Dosage: 2 GRAM, FOUR TIMES/DAY
     Route: 042
     Dates: start: 20240909
  6. VANCOMYCIN [Suspect]
     Active Substance: VANCOMYCIN
     Indication: Meningitis
     Dosage: 1 GRAM, TWO TIMES A DAY
     Route: 042
     Dates: start: 20240828, end: 20240905

REACTIONS (1)
  - Atrioventricular block [Recovered/Resolved]

NARRATIVE: CASE EVENT DATE: 20240908
